FAERS Safety Report 7627220-7 (Version None)
Quarter: 2011Q3

REPORT INFORMATION
  Report Type: 
  Country: None (occurrence: None)
  Receive Date: 20110714
  Receipt Date: 20110704
  Transmission Date: 20111222
  Serious: Yes (Other)
  Sender: FDA-Public Use
  Company Number: EU-2011-10111

PATIENT
  Age: 70 Year
  Sex: Female

DRUGS (9)
  1. METFORMIN HCL [Concomitant]
  2. OMEPRAZOLE [Concomitant]
  3. HYDROCHLOROTHIAZIDE [Concomitant]
  4. SIMVASTATIN [Concomitant]
  5. AMLODIPINE BESYLATE [Concomitant]
  6. GLICLAZIDE [Concomitant]
  7. CILOSTAZOL [Suspect]
     Indication: INTERMITTENT CLAUDICATION
     Dosage: 100 MG MILLIGRAM(S), DAILY DOSE, ORAL
     Route: 048
     Dates: start: 20110507, end: 20110510
  8. ASPIRIN [Suspect]
     Dosage: 100 MG MILLIGRAM(S), DAILY DOSE, ORAL
     Route: 048
     Dates: start: 20050101
  9. LOSARTAN (LOSARTAN POTASSIUM) [Concomitant]

REACTIONS (6)
  - PALLOR [None]
  - HAEMOGLOBIN DECREASED [None]
  - UPPER GASTROINTESTINAL HAEMORRHAGE [None]
  - DIZZINESS [None]
  - DUODENITIS [None]
  - DRUG INTERACTION [None]
